FAERS Safety Report 4511726-3 (Version None)
Quarter: 2004Q4

REPORT INFORMATION
  Report Type: 
  Country: None (occurrence: None)
  Receive Date: 20041129
  Receipt Date: 20041115
  Transmission Date: 20050328
  Serious: Yes (Death)
  Sender: FDA-Public Use
  Company Number: 200413499JP

PATIENT
  Age: 58 Year
  Sex: Male

DRUGS (7)
  1. AMARYL [Suspect]
     Route: 048
     Dates: start: 20040911
  2. PRIMPERAN INJ [Concomitant]
     Indication: GASTRITIS
  3. CONIEL [Concomitant]
     Indication: HYPERTENSION
  4. LENDORMIN [Concomitant]
     Indication: INSOMNIA
  5. ALPRAZOLAM [Concomitant]
  6. XYLITOL [Concomitant]
  7. TATHION [Concomitant]

REACTIONS (2)
  - HEPATIC CIRRHOSIS [None]
  - HEPATIC FAILURE [None]
